FAERS Safety Report 9675850 (Version 2)
Quarter: 2013Q4

REPORT INFORMATION
  Report Type: Spontaneous
  Country: IT (occurrence: IT)
  Receive Date: 20131107
  Receipt Date: 20131226
  Transmission Date: 20140711
  Serious: Yes (Hospitalization)
  Sender: FDA-Public Use
  Company Number: IT-BAYER-2013-135345

PATIENT
  Age: 80 Year
  Sex: Female

DRUGS (4)
  1. CARDIOASPIRIN [Suspect]
     Indication: THROMBOSIS PROPHYLAXIS
     Dosage: DAILY DOSE 100 MG
     Route: 048
     Dates: start: 20130709, end: 20130910
  2. NORVASC [Concomitant]
     Dosage: DAILY DOSE 5 MG
     Route: 048
  3. LANOXIN [Concomitant]
     Dosage: DAILY DOSE .125 MG
     Route: 048
  4. GLUCOPHAGE [Concomitant]
     Dosage: UNK
     Route: 048

REACTIONS (3)
  - Altered state of consciousness [Recovering/Resolving]
  - Abnormal behaviour [Recovering/Resolving]
  - Brain contusion [Recovering/Resolving]
